FAERS Safety Report 9702495 (Version 1)
Quarter: 2013Q4

REPORT INFORMATION
  Report Type: Spontaneous
  Country: NL (occurrence: NL)
  Receive Date: 20131121
  Receipt Date: 20131121
  Transmission Date: 20140711
  Serious: Yes (Death)
  Sender: FDA-Public Use
  Company Number: PHHY2013NL133282

PATIENT
  Sex: Female

DRUGS (1)
  1. CYPROTERONE+ETHINYLESTRADIOL [Suspect]

REACTIONS (1)
  - Cerebral haemorrhage [Fatal]
